FAERS Safety Report 6072963-2 (Version None)
Quarter: 2009Q1

REPORT INFORMATION
  Report Type: 
  Country: None (occurrence: None)
  Receive Date: 20090205
  Receipt Date: 20080925
  Transmission Date: 20090719
  Serious: Yes (Other)
  Sender: FDA-Public Use
  Company Number: 2-0908-21

PATIENT
  Age: 52 Year
  Sex: Female

DRUGS (5)
  1. DERMA-SMOOTHE/FS [Suspect]
     Indication: PSORIASIS
     Dosage: TOPICAL
     Route: 061
  2. LEVOTHROID [Concomitant]
  3. ATENOLONE [Concomitant]
  4. SINEVACBACTIN [Concomitant]
  5. LANEXININE [Concomitant]

REACTIONS (2)
  - PRURITUS [None]
  - SKIN WARM [None]
